FAERS Safety Report 24737098 (Version 1)
Quarter: 2024Q4

REPORT INFORMATION
  Report Type: Spontaneous
  Country: US (occurrence: None)
  Receive Date: 20241213
  Receipt Date: 20241213
  Transmission Date: 20250115
  Serious: No
  Sender: Public
  Company Number: None

PATIENT
  Sex: Female

DRUGS (1)
  1. LENALIDOMIDE [Suspect]
     Active Substance: LENALIDOMIDE
     Indication: Neoplasm malignant
     Dosage: OTHER FREQUENCY : DAILYFOR21DAYSONTHEN7DAYSOFF;?
     Route: 048

REACTIONS (2)
  - Tinnitus [None]
  - Blood calcium decreased [None]
